FAERS Safety Report 8778857 (Version 1)
Quarter: 2012Q4

REPORT INFORMATION
  Report Type: 
  Country: US (occurrence: US)
  Receive Date: 20120912
  Receipt Date: 20120912
  Transmission Date: 20130627
  Serious: Yes (Hospitalization)
  Sender: FDA-Public Use
  Company Number: PHEH2012US017659

PATIENT
  Sex: Male

DRUGS (2)
  1. GLEEVEC [Suspect]
     Indication: HYPERTENSION
     Dosage: 400 mg, QD
     Route: 048
     Dates: start: 20101221
  2. ANTICOAGULANTS [Concomitant]

REACTIONS (3)
  - Haemorrhage [Unknown]
  - Mental disorder [Unknown]
  - Mental status changes [None]
